FAERS Safety Report 10092801 (Version 1)
Quarter: 2014Q2

REPORT INFORMATION
  Report Type: Spontaneous
  Country: US (occurrence: US)
  Receive Date: 20140421
  Receipt Date: 20140421
  Transmission Date: 20141212
  Serious: No
  Sender: FDA-Public Use
  Company Number: US-SANOFI-AVENTIS-2013SA047267

PATIENT
  Age: 72 Year
  Sex: Female

DRUGS (3)
  1. ALLEGRA [Suspect]
     Dosage: FREQUENCY: QD PRN
     Route: 048
  2. FLOVENT [Concomitant]
  3. PULMICORT [Concomitant]

REACTIONS (4)
  - Abnormal dreams [Not Recovered/Not Resolved]
  - Fatigue [Not Recovered/Not Resolved]
  - Wrong technique in drug usage process [Unknown]
  - Extra dose administered [Unknown]
